FAERS Safety Report 5565862-3 (Version None)
Quarter: 2007Q4

REPORT INFORMATION
  Report Type: 
  Country: None (occurrence: None)
  Receive Date: 20071213
  Receipt Date: 20071128
  Transmission Date: 20080405
  Serious: Yes (Life-Threatening)
  Sender: FDA-Public Use
  Company Number: 8027780

PATIENT
  Age: 60 Year
  Sex: Female
  Weight: 57 kg

DRUGS (3)
  1. KEPPRA [Suspect]
     Dates: start: 20070801
  2. TEMODAL [Suspect]
     Indication: GLIOBLASTOMA
     Dosage: 130 MG /D PO
     Route: 048
     Dates: start: 20070911, end: 20071005
  3. COTRIM FORTE EU RHO [Concomitant]

REACTIONS (3)
  - AGRANULOCYTOSIS [None]
  - APLASTIC ANAEMIA [None]
  - PANCYTOPENIA [None]
